FAERS Safety Report 10712000 (Version 1)
Quarter: 2015Q1

REPORT INFORMATION
  Report Type: Spontaneous
  Country: US (occurrence: US)
  Receive Date: 20150114
  Receipt Date: 20150114
  Transmission Date: 20150721
  Serious: No
  Sender: FDA-Public Use
  Company Number: US-ALLERGAN-1416320US

PATIENT
  Age: 38 Year
  Sex: Female

DRUGS (3)
  1. BENZOYL PEROXIDE. [Suspect]
     Active Substance: BENZOYL PEROXIDE
     Indication: PRODUCT USED FOR UNKNOWN INDICATION
  2. ACZONE [Suspect]
     Active Substance: DAPSONE
     Indication: ACNE
     Dosage: 1-2 TIMES DAILY
     Route: 061
     Dates: start: 201404
  3. METFORMIN [Concomitant]
     Active Substance: METFORMIN HYDROCHLORIDE
     Indication: DIABETES MELLITUS
     Dosage: 1000 MG, BID
     Route: 048

REACTIONS (3)
  - Erythema [Recovering/Resolving]
  - Skin hyperpigmentation [Not Recovered/Not Resolved]
  - Urticaria papular [Not Recovered/Not Resolved]

NARRATIVE: CASE EVENT DATE: 201407
